FAERS Safety Report 23792455 (Version 1)
Quarter: 2024Q2

REPORT INFORMATION
  Report Type: Spontaneous
  Country: FR (occurrence: FR)
  Receive Date: 20240429
  Receipt Date: 20240429
  Transmission Date: 20240716
  Serious: Yes (Hospitalization, Other)
  Sender: FDA-Public Use
  Company Number: FR-AFSSAPS-SE2024000297

PATIENT
  Age: 51 Year
  Sex: Male
  Weight: 76.5 kg

DRUGS (1)
  1. AMOXICILLIN [Suspect]
     Active Substance: AMOXICILLIN
     Indication: Endocarditis
     Dosage: 12 GRAM, ONCE A DAY
     Route: 042
     Dates: start: 20240301, end: 20240403

REACTIONS (3)
  - Acute kidney injury [Recovering/Resolving]
  - Haematuria [Recovering/Resolving]
  - Overdose [Recovered/Resolved]

NARRATIVE: CASE EVENT DATE: 20240330
